FAERS Safety Report 5733517-8 (Version None)
Quarter: 2008Q2

REPORT INFORMATION
  Report Type: 
  Country: None (occurrence: None)
  Receive Date: 20080509
  Receipt Date: 20080429
  Transmission Date: 20081010
  Serious: Yes (Other)
  Sender: FDA-Public Use
  Company Number: CH-ABBOTT-06P-151-0338112-00

PATIENT
  Age: 30 Year
  Sex: Female

DRUGS (5)
  1. KALETRA [Suspect]
     Indication: HIV INFECTION
     Dosage: 33.3MG/133.3 MG, 2 IN 1 D
     Route: 048
     Dates: start: 20060608
  2. METHADONE HCL [Suspect]
     Indication: DRUG DEPENDENCE
     Route: 048
     Dates: start: 20030101
  3. METHADONE HCL [Suspect]
     Indication: MENTAL DISORDER
  4. METHADONE HCL [Suspect]
     Indication: ABNORMAL BEHAVIOUR
  5. NELFINAVIR MESILATE [Concomitant]
     Indication: HIV INFECTION

REACTIONS (1)
  - DRUG INTOLERANCE [None]
